FAERS Safety Report 12802528 (Version 2)
Quarter: 2016Q4

REPORT INFORMATION
  Report Type: Spontaneous
  Country: DE (occurrence: DE)
  Receive Date: 20161003
  Receipt Date: 20161011
  Transmission Date: 20170207
  Serious: Yes (Death, Life-Threatening, Hospitalization, Other)
  Sender: FDA-Public Use
  Company Number: DE-VALIDUS PHARMACEUTICALS LLC-DE-2016VAL002762

PATIENT
  Age: 57 Year
  Sex: Male

DRUGS (10)
  1. IDARUBICIN HYDROCHLORIDE. [Concomitant]
     Active Substance: IDARUBICIN HYDROCHLORIDE
     Indication: ACUTE MYELOID LEUKAEMIA
     Dosage: UNK
     Route: 065
     Dates: start: 20160802, end: 20160806
  2. CYTARABINE. [Concomitant]
     Active Substance: CYTARABINE
     Indication: ACUTE MYELOID LEUKAEMIA
     Dosage: UNK
     Route: 065
     Dates: start: 20160802, end: 20160808
  3. VANCOMYCIN [Concomitant]
     Active Substance: VANCOMYCIN
     Indication: FEBRILE INFECTION
     Dosage: UNK
     Route: 065
     Dates: start: 20160819, end: 20160820
  4. LASIX [Suspect]
     Active Substance: FUROSEMIDE
     Indication: OEDEMA
     Dosage: 40 MG, BID
     Route: 042
  5. NOXAFIL [Concomitant]
     Active Substance: POSACONAZOLE
     Indication: FEBRILE INFECTION
     Dosage: UNK
     Route: 065
     Dates: start: 20160804, end: 20160825
  6. TRETINOIN. [Concomitant]
     Active Substance: TRETINOIN
     Indication: ACUTE MYELOID LEUKAEMIA
     Dosage: UNK
     Route: 065
     Dates: start: 20160807, end: 20160822
  7. AMBISOME [Concomitant]
     Active Substance: AMPHOTERICIN B
     Indication: FEBRILE INFECTION
     Dosage: UNK
     Route: 042
     Dates: start: 20160823, end: 20160828
  8. ZYVOXID [Concomitant]
     Active Substance: LINEZOLID
     Indication: FEBRILE INFECTION
     Dosage: UNK
     Route: 065
     Dates: start: 20160821, end: 20160901
  9. ETOPOSIDE. [Concomitant]
     Active Substance: ETOPOSIDE
     Indication: ACUTE MYELOID LEUKAEMIA
     Dosage: UNK
     Route: 065
     Dates: start: 20160802, end: 20160804
  10. GEMTUZUMAB OZOGAMICIN [Suspect]
     Active Substance: GEMTUZUMAB OZOGAMICIN
     Indication: ACUTE MYELOID LEUKAEMIA
     Dosage: 6 MG, QD
     Route: 065
     Dates: start: 20160804

REACTIONS (2)
  - Renal failure [Fatal]
  - Opportunistic infection [Fatal]

NARRATIVE: CASE EVENT DATE: 20160828
